FAERS Safety Report 6465450-0 (Version None)
Quarter: 2009Q4

REPORT INFORMATION
  Report Type: 
  Country: None (occurrence: None)
  Receive Date: 20091119
  Receipt Date: 20090908
  Transmission Date: 20100525
  Serious: No
  Sender: FDA-Public Use
  Company Number: WAES 0909USA00971

PATIENT
  Age: 66 Year
  Sex: Female

DRUGS (2)
  1. JANUVIA [Suspect]
     Dosage: PO
     Route: 048
  2. AMARYL [Suspect]

REACTIONS (2)
  - BLOOD GLUCOSE DECREASED [None]
  - MALAISE [None]
